FAERS Safety Report 11792423 (Version 1)
Quarter: 2015Q4

REPORT INFORMATION
  Report Type: Report from Study
  Country: DE (occurrence: DE)
  Receive Date: 20151202
  Receipt Date: 20151202
  Transmission Date: 20160305
  Serious: Yes (Hospitalization)
  Sender: FDA-Public Use
  Company Number: DE-ABBVIE-15K-062-1508295-00

PATIENT
  Age: 52 Year
  Sex: Female
  Weight: 59 kg

DRUGS (2)
  1. METHOTREXATE [Concomitant]
     Active Substance: METHOTREXATE
     Indication: RHEUMATOID ARTHRITIS
     Route: 048
     Dates: start: 201109, end: 20150710
  2. HUMIRA [Suspect]
     Active Substance: ADALIMUMAB
     Indication: RHEUMATOID ARTHRITIS
     Route: 058
     Dates: start: 200706, end: 20150618

REACTIONS (4)
  - Impaired healing [Recovered/Resolved]
  - Foot deformity [Recovered/Resolved]
  - Postoperative wound infection [Recovered/Resolved]
  - Metatarsalgia [Recovered/Resolved]

NARRATIVE: CASE EVENT DATE: 20150717
